FAERS Safety Report 6830771-6 (Version None)
Quarter: 2010Q3

REPORT INFORMATION
  Report Type: 
  Country: None (occurrence: None)
  Receive Date: 20100712
  Receipt Date: 20100702
  Transmission Date: 20110219
  Serious: Yes (Other)
  Sender: FDA-Public Use
  Company Number: PHHY2010SE36733

PATIENT

DRUGS (1)
  1. RITALIN [Suspect]
     Dosage: UNK

REACTIONS (1)
  - BONE MARROW DISORDER [None]
